FAERS Safety Report 13049390 (Version 1)
Quarter: 2016Q4

REPORT INFORMATION
  Report Type: Spontaneous
  Country: US (occurrence: US)
  Receive Date: 20161220
  Receipt Date: 20161220
  Transmission Date: 20170207
  Serious: Yes (Disabling)
  Sender: FDA-Public Use
  Company Number: None

PATIENT
  Age: 61 Year
  Sex: Female

DRUGS (4)
  1. SULFAMETHOXAZOLE [Concomitant]
     Active Substance: SULFAMETHOXAZOLE
  2. PREDNISONE. [Concomitant]
     Active Substance: PREDNISONE
  3. COMFORT SHIELD BARRIER [Suspect]
     Active Substance: DIMETHICONE
     Indication: PROPHYLAXIS URINARY TRACT INFECTION
     Dosage: ?          OTHER ROUTE:WIPES,?
     Dates: start: 20160518, end: 20160815
  4. DOXYCYCLINEMONO [Concomitant]

REACTIONS (1)
  - Application site rash [None]

NARRATIVE: CASE EVENT DATE: 20160524
